FAERS Safety Report 9300896 (Version 2)
Quarter: 2013Q2

REPORT INFORMATION
  Report Type: Spontaneous
  Country: JP (occurrence: JP)
  Receive Date: 20130521
  Receipt Date: 20130617
  Transmission Date: 20140414
  Serious: No
  Sender: FDA-Public Use
  Company Number: JP-ELI_LILLY_AND_COMPANY-JP201305003911

PATIENT
  Age: 51 Year
  Sex: Female

DRUGS (15)
  1. ZYPREXA [Suspect]
     Indication: SCHIZOPHRENIA
     Dosage: 10 MG, QD
     Route: 048
     Dates: end: 20130513
  2. FLUITRAN [Concomitant]
     Dosage: 1 MG, QD
     Route: 048
  3. ARTIST [Concomitant]
     Dosage: 2.5 MG, UNK
     Route: 048
  4. CARDENALIN [Concomitant]
     Dosage: 2 MG, UNK
     Route: 048
  5. CALBLOCK [Concomitant]
     Dosage: 8 MG, BID
     Route: 048
  6. ALEVIATIN [Concomitant]
     Dosage: 150 MG, BID
     Route: 048
  7. URSO [Concomitant]
     Dosage: 100 MG, BID
     Route: 048
  8. GASTER D [Concomitant]
     Dosage: 10 MG, BID
     Route: 048
  9. MEILAX [Concomitant]
     Dosage: 1 MG, QD
     Route: 048
  10. ROHYPNOL [Concomitant]
     Dosage: 1 MG, QD
     Route: 048
  11. RESLIN [Concomitant]
     Dosage: 25 MG, QD
     Route: 048
  12. LAXOBERON [Concomitant]
     Dosage: 2.5 MG, QD
     Route: 048
  13. MAGMITT [Concomitant]
     Dosage: 330 MG, QD
     Route: 048
  14. SOLANAX [Concomitant]
     Dosage: 0.4 MG, QD
     Route: 048
  15. DEPAS [Concomitant]
     Dosage: 0.5 MG, UNK
     Route: 048

REACTIONS (2)
  - Renal impairment [Recovered/Resolved]
  - Blood pressure decreased [Recovered/Resolved]
